FAERS Safety Report 9311561 (Version 4)
Quarter: 2017Q3

REPORT INFORMATION
  Report Type: Spontaneous
  Country: JP (occurrence: JP)
  Receive Date: 20130528
  Receipt Date: 20170713
  Transmission Date: 20171128
  Serious: Yes (Death, Other)
  Sender: FDA-Public Use
  Company Number: JP-PFIZER INC-2013134867

PATIENT
  Age: 62 Year
  Sex: Male

DRUGS (9)
  1. ANCARON [Suspect]
     Active Substance: AMIODARONE HYDROCHLORIDE
     Indication: ARRHYTHMIA
     Dosage: 400 MG, DAILY
     Route: 048
     Dates: start: 2011, end: 201301
  2. DIART [Concomitant]
     Active Substance: AZOSEMIDE
     Dosage: UNK
  3. RENIVACE [Concomitant]
     Active Substance: ENALAPRIL
     Dosage: UNK
  4. ANCARON [Suspect]
     Active Substance: AMIODARONE HYDROCHLORIDE
     Indication: VENTRICULAR TACHYCARDIA
     Dosage: 150 MG, DAILY
     Route: 048
     Dates: start: 200011
  5. CRESTOR [Concomitant]
     Active Substance: ROSUVASTATIN CALCIUM
     Dosage: UNK
  6. ARTIST [Concomitant]
     Active Substance: CARVEDILOL
     Dosage: UNK
  7. SOTACOR [Concomitant]
     Active Substance: SOTALOL HYDROCHLORIDE
     Indication: VENTRICULAR TACHYCARDIA
     Dosage: UNK
     Dates: start: 201108
  8. PARIET [Concomitant]
     Active Substance: RABEPRAZOLE SODIUM
     Dosage: UNK
  9. PREDONINE [Concomitant]
     Active Substance: PREDNISOLONE
     Dosage: UNK

REACTIONS (5)
  - Acute kidney injury [Fatal]
  - Drug-induced liver injury [Fatal]
  - Hepatic cirrhosis [Fatal]
  - Hepatic failure [Fatal]
  - Non-alcoholic steatohepatitis [Fatal]

NARRATIVE: CASE EVENT DATE: 201212
